FAERS Safety Report 9241883 (Version 1)
Quarter: 2013Q2

REPORT INFORMATION
  Report Type: Spontaneous
  Country: US (occurrence: US)
  Receive Date: 20130419
  Receipt Date: 20130419
  Transmission Date: 20140414
  Serious: Yes (Other)
  Sender: FDA-Public Use
  Company Number: US-PFIZER INC-2013122628

PATIENT
  Age: 56 Year
  Sex: Female
  Weight: 62.1 kg

DRUGS (2)
  1. XELJANZ [Suspect]
     Indication: RHEUMATOID ARTHRITIS
     Dosage: 5 MG, TWO TIMES A DAY
     Route: 048
     Dates: start: 20121201, end: 20130327
  2. METHOTREXATE [Concomitant]
     Dosage: UNK

REACTIONS (1)
  - Arthropathy [Unknown]
